FAERS Safety Report 9011805 (Version 2)
Quarter: 2013Q1

REPORT INFORMATION
  Report Type: Spontaneous
  Country: US (occurrence: None)
  Receive Date: 20121228
  Receipt Date: 20121231
  Transmission Date: 20140127
  Serious: Yes (Other)
  Sender: FDA-Public Use
  Company Number: JPI-P-026896

PATIENT
  Age: 44 Year
  Sex: Female

DRUGS (8)
  1. XYREM (500 MILLIGRAM/MILLILITERS,. SOLUTION (SODIUM XYBATE) [Suspect]
     Indication: INSOMNIA
     Route: 048
     Dates: start: 20120308
  2. PHENYTOIN [Concomitant]
  3. POTASSIUM [Concomitant]
  4. BIRTH CONTROL PILL [Concomitant]
  5. CLONAZEPAM [Concomitant]
  6. FLURAZEPAM [Concomitant]
  7. HALOPERIDOL [Concomitant]
  8. PAROXETINE HYDROCHLORIDE [Concomitant]

REACTIONS (4)
  - Nasopharyngitis [None]
  - Musculoskeletal chest pain [None]
  - Rib fracture [None]
  - Fall [None]
